FAERS Safety Report 16300895 (Version 1)
Quarter: 2019Q2

REPORT INFORMATION
  Report Type: Spontaneous
  Country: RO (occurrence: RO)
  Receive Date: 20190510
  Receipt Date: 20190510
  Transmission Date: 20190711
  Serious: Yes (Other)
  Sender: FDA-Public Use
  Company Number: RO-ROCHE-2315250

PATIENT

DRUGS (3)
  1. SUMETROLIM [Suspect]
     Active Substance: SULFAMETHOXAZOLE\TRIMETHOPRIM
     Indication: INFLUENZA
     Route: 065
  2. TAMIFLU [Suspect]
     Active Substance: OSELTAMIVIR PHOSPHATE
     Indication: INFLUENZA
     Route: 065
  3. KLACID [CLARITHROMYCIN] [Suspect]
     Active Substance: CLARITHROMYCIN
     Indication: INFLUENZA
     Route: 065

REACTIONS (1)
  - Enterocolitis [Unknown]
